FAERS Safety Report 11226960 (Version 2)
Quarter: 2015Q3

REPORT INFORMATION
  Report Type: Spontaneous
  Country: IT (occurrence: IT)
  Receive Date: 20150630
  Receipt Date: 20150716
  Transmission Date: 20151125
  Serious: Yes (Hospitalization)
  Sender: FDA-Public Use
  Company Number: IT-ROCHE-1588195

PATIENT
  Age: 58 Year
  Sex: Female

DRUGS (2)
  1. LETROZOLE. [Concomitant]
     Active Substance: LETROZOLE
     Route: 048
  2. HERCEPTIN [Suspect]
     Active Substance: TRASTUZUMAB
     Indication: BREAST CANCER
     Dosage: 600 MG/5 ML-  6 ML BOTTLE (GLASS) - 1 BOTTLE
     Route: 058
     Dates: start: 20150518, end: 20150518

REACTIONS (4)
  - Tachycardia [Recovered/Resolved]
  - Tremor [Recovered/Resolved]
  - Pyrexia [Recovered/Resolved]
  - Nausea [Recovered/Resolved]

NARRATIVE: CASE EVENT DATE: 20150518
